FAERS Safety Report 16727956 (Version 1)
Quarter: 2019Q3

REPORT INFORMATION
  Report Type: Report from Study
  Country: US (occurrence: US)
  Receive Date: 20190822
  Receipt Date: 20190822
  Transmission Date: 20191005
  Serious: Yes (Hospitalization)
  Sender: FDA-Public Use
  Company Number: US-BIOGEN-2019BI00775536

PATIENT
  Sex: Female

DRUGS (2)
  1. TECFIDERA [Suspect]
     Active Substance: DIMETHYL FUMARATE
     Indication: MULTIPLE SCLEROSIS
     Dosage: MAINTENANCE DOSE
     Route: 048
     Dates: start: 20181024, end: 20181114
  2. TECFIDERA [Suspect]
     Active Substance: DIMETHYL FUMARATE
     Dosage: MAINTENANCE DOSE
     Route: 048
     Dates: end: 20190714

REACTIONS (9)
  - Hallucination, visual [Not Recovered/Not Resolved]
  - Retching [Recovered/Resolved]
  - Sleep talking [Not Recovered/Not Resolved]
  - Urinary incontinence [Recovered/Resolved]
  - Musculoskeletal disorder [Not Recovered/Not Resolved]
  - Middle insomnia [Recovered/Resolved]
  - Tremor [Recovered/Resolved]
  - Somnambulism [Not Recovered/Not Resolved]
  - Vomiting [Recovered/Resolved]
